FAERS Safety Report 23898914 (Version 1)
Quarter: 2024Q2

REPORT INFORMATION
  Report Type: Spontaneous
  Country: PT (occurrence: PT)
  Receive Date: 20240525
  Receipt Date: 20240525
  Transmission Date: 20240717
  Serious: Yes (Hospitalization, Other)
  Sender: FDA-Public Use
  Company Number: PT-PIRAMAL CRITICAL CARE LIMITED-2024-PPL-000395

PATIENT

DRUGS (1)
  1. SEVOFLURANE [Suspect]
     Active Substance: SEVOFLURANE
     Indication: General anaesthesia
     Dosage: UNK

REACTIONS (3)
  - Haemoptysis [Unknown]
  - Respiratory failure [Unknown]
  - Pulmonary alveolar haemorrhage [Unknown]
